FAERS Safety Report 7552199-6 (Version None)
Quarter: 2011Q2

REPORT INFORMATION
  Report Type: 
  Country: None (occurrence: None)
  Receive Date: 20110616
  Receipt Date: 20110614
  Transmission Date: 20111010
  Serious: Yes (Hospitalization)
  Sender: FDA-Public Use
  Company Number: US-MERCK-1104USA03886

PATIENT
  Age: 76 Year
  Sex: Female

DRUGS (3)
  1. COZAAR [Suspect]
     Route: 065
     Dates: start: 20110222, end: 20110420
  2. HYDRODIURIL [Suspect]
     Route: 048
     Dates: start: 20110222, end: 20110420
  3. HYZAAR [Suspect]
     Indication: BLOOD PRESSURE
     Route: 048
     Dates: end: 20110420

REACTIONS (8)
  - JOINT SWELLING [None]
  - OEDEMA PERIPHERAL [None]
  - FALL [None]
  - DIZZINESS [None]
  - NAUSEA [None]
  - LOSS OF CONSCIOUSNESS [None]
  - ROTATOR CUFF SYNDROME [None]
  - HEADACHE [None]
